FAERS Safety Report 8420896-6 (Version None)
Quarter: 2012Q2

REPORT INFORMATION
  Report Type: 
  Country: None (occurrence: None)
  Receive Date: 20120608
  Receipt Date: 20120601
  Transmission Date: 20120825
  Serious: Yes (Hospitalization)
  Sender: FDA-Public Use
  Company Number: US-BAYER-2012-055391

PATIENT
  Age: 46 Year
  Sex: Female
  Weight: 68.027 kg

DRUGS (16)
  1. NITROFURANTOIN [Concomitant]
     Dosage: 100 MG, UNK
     Dates: start: 20111111
  2. FUROSEMIDE [Concomitant]
     Dosage: 40 MG, DAILY
     Dates: start: 20120116
  3. FLUOXETINE [Concomitant]
     Dosage: 20 MG, DAILY
     Route: 048
     Dates: start: 20111206
  4. LEXAPRO [Concomitant]
     Dosage: 10 MG, UNK
     Dates: start: 20101130, end: 20111109
  5. MELOXICAM [Concomitant]
     Dosage: 7.5 TO 15 MG
     Dates: start: 20110309, end: 20111213
  6. PROZAC [Concomitant]
     Dosage: UNK
     Route: 048
     Dates: start: 20120131
  7. BUMETANIDE [Concomitant]
     Dosage: 0.5 MG, UNK
     Route: 048
     Dates: start: 20111110
  8. AMITRIPTYLINE HCL [Concomitant]
     Dosage: 25 MG, UNK
     Dates: start: 20111121
  9. FLUCONAZOLE 150-DIFULCAN [Concomitant]
     Dosage: UNK
     Route: 048
     Dates: start: 20111006
  10. YAZ [Suspect]
  11. ALPRAZOLAM [Concomitant]
     Indication: ANXIETY
     Dosage: 0.25 MG, UNK
     Route: 048
     Dates: start: 20101130
  12. METOPROLOL [Concomitant]
     Dosage: 12.5 MG DAILY TO EVERY 12 HOURS
     Route: 048
     Dates: start: 20111219
  13. HYDROCHLOROTHIAZDE TAB [Concomitant]
     Dosage: 12.5 MG, UNK
     Route: 048
     Dates: start: 20111013
  14. SPIRONOLACTONE W/ HYDROCHLOROTHIAZIDE [Concomitant]
     Dosage: 25/25
     Dates: start: 20120110
  15. MACROBID [Concomitant]
     Dosage: UNK
     Dates: start: 20120131
  16. DROSPIRENONE AND ETHINYL ESTRADIOL [Suspect]

REACTIONS (2)
  - DEEP VEIN THROMBOSIS [None]
  - PULMONARY EMBOLISM [None]
